FAERS Safety Report 6847405-7 (Version None)
Quarter: 2010Q3

REPORT INFORMATION
  Report Type: 
  Country: None (occurrence: None)
  Receive Date: 20100716
  Receipt Date: 20100709
  Transmission Date: 20110219
  Serious: Yes (Other)
  Sender: FDA-Public Use
  Company Number: US-ELI_LILLY_AND_COMPANY-US201007002896

PATIENT
  Sex: Female

DRUGS (6)
  1. HUMULIN N [Suspect]
     Indication: DIABETES MELLITUS
     Dosage: 12 U, 2/D
  2. HUMULIN N [Suspect]
     Dosage: 38 U, OTHER
     Dates: start: 20100708, end: 20100708
  3. LASIX [Concomitant]
  4. METOPROLOL [Concomitant]
     Dosage: UNK, UNK
     Dates: end: 20100704
  5. LISINOPRIL [Concomitant]
  6. DIAZEPAM [Concomitant]

REACTIONS (10)
  - ARTHRALGIA [None]
  - ARTHRITIS [None]
  - ARTHROPATHY [None]
  - ATRIAL FIBRILLATION [None]
  - BLOOD GLUCOSE INCREASED [None]
  - CARDIOMEGALY [None]
  - CEREBROVASCULAR ACCIDENT [None]
  - FALL [None]
  - HEART RATE INCREASED [None]
  - JOINT SWELLING [None]
